FAERS Safety Report 12743573 (Version 1)
Quarter: 2016Q3

REPORT INFORMATION
  Report Type: Spontaneous
  Country: US (occurrence: US)
  Receive Date: 20160914
  Receipt Date: 20160914
  Transmission Date: 20161109
  Serious: No
  Sender: FDA-Public Use
  Company Number: None

PATIENT
  Age: 78 Year
  Sex: Male
  Weight: 104.33 kg

DRUGS (8)
  1. OCUVITE [Concomitant]
     Active Substance: VITAMINS
  2. CIPROFLOXACIN. [Suspect]
     Active Substance: CIPROFLOXACIN
     Indication: DIVERTICULITIS
     Route: 048
     Dates: start: 20160710, end: 20160715
  3. METRONIDAZOLE. [Suspect]
     Active Substance: METRONIDAZOLE
     Indication: DIVERTICULITIS
     Route: 048
     Dates: start: 20150710, end: 20150715
  4. LOW DOSE ASPIRIN [Concomitant]
     Active Substance: ASPIRIN
  5. FUROSEMIDE. [Concomitant]
     Active Substance: FUROSEMIDE
  6. SYNTHROID [Concomitant]
     Active Substance: LEVOTHYROXINE SODIUM
  7. CARDEBILOL [Concomitant]
  8. ELIQUIS [Concomitant]
     Active Substance: APIXABAN

REACTIONS (9)
  - Swollen tongue [None]
  - Asthenia [None]
  - Decreased appetite [None]
  - Gastric disorder [None]
  - Dry mouth [None]
  - Tongue disorder [None]
  - Dysgeusia [None]
  - Fungal infection [None]
  - Activities of daily living impaired [None]

NARRATIVE: CASE EVENT DATE: 20160710
